FAERS Safety Report 7741181-1 (Version None)
Quarter: 2011Q3

REPORT INFORMATION
  Report Type: 
  Country: None (occurrence: None)
  Receive Date: 20110909
  Receipt Date: 20110830
  Transmission Date: 20111222
  Serious: Yes (Hospitalization, Other)
  Sender: FDA-Public Use
  Company Number: US-ELI_LILLY_AND_COMPANY-US201108009378

PATIENT
  Age: 43 Year
  Sex: Female

DRUGS (11)
  1. ZANAFLEX [Concomitant]
     Dosage: 4 MG, EVERY 8 HRS
     Route: 065
  2. ATENOLOL [Concomitant]
     Dosage: 100 MG, QD
     Route: 065
  3. AMLODIPINE [Concomitant]
     Dosage: 5 MG, BID
     Route: 065
  4. CYMBALTA [Suspect]
     Indication: DEPRESSION
     Dosage: 60 MG, QD
     Route: 048
  5. SYNTHROID [Concomitant]
     Dosage: 125 UG, QD
     Route: 065
  6. AMBIEN [Concomitant]
     Dosage: 10 MG, QD
     Route: 065
  7. LORATADINE [Concomitant]
     Dosage: 10 MG, PRN
     Route: 065
  8. ZOFRAN [Concomitant]
     Indication: NAUSEA
     Dosage: 4 MG, PRN
     Route: 065
  9. FLONASE [Concomitant]
     Dosage: UNK UNK, QD
     Route: 045
  10. ALBUTEROL SULFATE AUTOHALER [Concomitant]
     Dosage: UNK, UNKNOWN
     Route: 055
  11. BUSPAR [Concomitant]
     Dosage: UNK, UNKNOWN
     Route: 065

REACTIONS (3)
  - DRUG INEFFECTIVE [None]
  - INTENTIONAL DRUG MISUSE [None]
  - GASTRIC BYPASS [None]
